FAERS Safety Report 16168863 (Version 1)
Quarter: 2019Q2

REPORT INFORMATION
  Report Type: Spontaneous
  Country: US (occurrence: US)
  Receive Date: 20190405
  Receipt Date: 20190405
  Transmission Date: 20190711
  Serious: Yes (Disabling, Other)
  Sender: FDA-Public Use
  Company Number: None

PATIENT
  Age: 43 Year
  Sex: Female
  Weight: 85.05 kg

DRUGS (1)
  1. AJOVY [Suspect]
     Active Substance: FREMANEZUMAB-VFRM
     Indication: MIGRAINE
     Dosage: ?          QUANTITY:1 INJECTION(S);OTHER FREQUENCY:1X A MONTH;OTHER ROUTE:SUBQ RMQ ABD?
     Dates: start: 20190213, end: 20190315

REACTIONS (16)
  - Muscle spasms [None]
  - Gait inability [None]
  - Arthralgia [None]
  - Aphasia [None]
  - Neuralgia [None]
  - Sinus disorder [None]
  - Suicidal ideation [None]
  - Blood pressure inadequately controlled [None]
  - Hemiparesis [None]
  - Fall [None]
  - Dyspnoea exertional [None]
  - Headache [None]
  - Balance disorder [None]
  - Palpitations [None]
  - Hypoaesthesia [None]
  - Heart rate increased [None]

NARRATIVE: CASE EVENT DATE: 20190315
